FAERS Safety Report 4773416-1 (Version None)
Quarter: 2005Q3

REPORT INFORMATION
  Report Type: 
  Country: None (occurrence: None)
  Receive Date: 20050920
  Receipt Date: 20050908
  Transmission Date: 20060218
  Serious: Yes (Other)
  Sender: FDA-Public Use
  Company Number: US-JNJFOC-20050901681

PATIENT
  Sex: Female

DRUGS (6)
  1. REMICADE [Suspect]
     Dosage: THREE INFUSIONS
     Route: 042
  2. ARAVA [Concomitant]
  3. SULFASALAZINE [Concomitant]
  4. PLAQUENIL [Concomitant]
  5. DARVOCET [Concomitant]
  6. DARVOCET [Concomitant]

REACTIONS (1)
  - BREAST CANCER [None]
